FAERS Safety Report 25710208 (Version 1)
Quarter: 2025Q3

REPORT INFORMATION
  Report Type: Spontaneous
  Country: US (occurrence: None)
  Receive Date: 20250820
  Receipt Date: 20250820
  Transmission Date: 20251021
  Serious: Yes (Other)
  Sender: FDA-CTU
  Company Number: None

PATIENT
  Age: 47 Year
  Sex: Female

DRUGS (1)
  1. OFEV [Suspect]
     Active Substance: NINTEDANIB
     Indication: Interstitial lung disease
     Dosage: FREQUENCY : TWICE A DAY;?
     Route: 048
     Dates: start: 20250522, end: 20250808

REACTIONS (4)
  - Hepatic function abnormal [None]
  - Aspartate aminotransferase increased [None]
  - Alanine aminotransferase increased [None]
  - Therapy cessation [None]

NARRATIVE: CASE EVENT DATE: 20250807
